FAERS Safety Report 6711696-3 (Version None)
Quarter: 2010Q2

REPORT INFORMATION
  Report Type: 
  Country: None (occurrence: None)
  Receive Date: 20100505
  Receipt Date: 20100421
  Transmission Date: 20101027
  Serious: Yes (Hospitalization)
  Sender: FDA-Public Use
  Company Number: US-ROCHE-696429

PATIENT
  Sex: Female
  Weight: 69.2 kg

DRUGS (6)
  1. BEVACIZUMAB [Suspect]
     Indication: GLIOBLASTOMA MULTIFORME
     Dosage: LAST DOSE PRIOR TO SAE: 25 MARCH 2010.
     Route: 042
     Dates: start: 20090226
  2. TEMOZOLOMIDE [Suspect]
     Indication: GLIOBLASTOMA
     Dosage: 150 MG DAILY DURING RADIATION THERAPY (6 WEEKS). LAST DOSE:8 APRIL 2009.
     Route: 048
     Dates: start: 20090206
  3. EVEROLIMUS [Suspect]
     Indication: GLIOBLASTOMA
     Dosage: 5 MG DAILY. LAST DOSE PRIOR TO SAE: 05 APRIL 2010.
     Route: 048
     Dates: start: 20090506
  4. HYDROCHLOROTHIAZIDE [Concomitant]
     Route: 048
     Dates: start: 20090807
  5. KEPPRA [Concomitant]
     Dosage: 500 MG DAILY.
     Route: 048
     Dates: start: 20090130
  6. ATENOLOL [Concomitant]
     Dosage: 25 MG DAILY (UNSURE IF STILL TAKES).
     Route: 048
     Dates: start: 20090813

REACTIONS (2)
  - CONVULSION [None]
  - URINARY TRACT INFECTION [None]
